FAERS Safety Report 9885309 (Version 1)
Quarter: 2014Q1

REPORT INFORMATION
  Report Type: Spontaneous
  Country: US (occurrence: None)
  Receive Date: 20140207
  Receipt Date: 20140207
  Transmission Date: 20141002
  Serious: Yes (Other)
  Sender: FDA-Public Use
  Company Number: None

PATIENT
  Age: 62 Year
  Sex: Male

DRUGS (2)
  1. MEKINIST [Suspect]
     Route: 048
     Dates: start: 20140130
  2. TAFINLAR [Suspect]
     Route: 048
     Dates: start: 20140130

REACTIONS (1)
  - Headache [None]
